FAERS Safety Report 9330082 (Version 1)
Quarter: 2013Q2

REPORT INFORMATION
  Report Type: Spontaneous
  Country: US (occurrence: US)
  Receive Date: 20130604
  Receipt Date: 20130604
  Transmission Date: 20140414
  Serious: No
  Sender: FDA-Public Use
  Company Number: US-ASTRAZENECA-2013SE35635

PATIENT
  Sex: Male

DRUGS (2)
  1. PRILOSEC [Suspect]
     Route: 048
  2. WATER PILL [Concomitant]

REACTIONS (3)
  - Pain in extremity [Unknown]
  - Limb deformity [Unknown]
  - Oedema peripheral [Unknown]
